FAERS Safety Report 4976866-3 (Version None)
Quarter: 2006Q2

REPORT INFORMATION
  Report Type: 
  Country: None (occurrence: None)
  Receive Date: 20060413
  Receipt Date: 20060331
  Transmission Date: 20061013
  Serious: Yes (Hospitalization, Other)
  Sender: FDA-Public Use
  Company Number: 2006045345

PATIENT

DRUGS (1)
  1. ZMAX [Suspect]
     Indication: ILL-DEFINED DISORDER

REACTIONS (1)
  - BLOOD GLUCOSE DECREASED [None]
